FAERS Safety Report 7412421-3 (Version None)
Quarter: 2011Q2

REPORT INFORMATION
  Report Type: 
  Country: None (occurrence: None)
  Receive Date: 20110413
  Receipt Date: 20110404
  Transmission Date: 20111010
  Serious: Yes (Other)
  Sender: FDA-Public Use
  Company Number: PHHY2011CA28451

PATIENT
  Sex: Female

DRUGS (2)
  1. PREDNISONE [Concomitant]
  2. ACLASTA [Suspect]
     Indication: OSTEOPOROSIS
     Dosage: 5 MG, UNK
     Route: 042
     Dates: start: 20100420

REACTIONS (5)
  - HYPERTENSION [None]
  - VISUAL IMPAIRMENT [None]
  - NAUSEA [None]
  - DIZZINESS [None]
  - PAIN IN JAW [None]
